FAERS Safety Report 25439602 (Version 1)
Quarter: 2025Q2

REPORT INFORMATION
  Report Type: Spontaneous
  Country: US (occurrence: None)
  Receive Date: 20250613
  Receipt Date: 20250613
  Transmission Date: 20250717
  Serious: No
  Sender: FDA-CTU
  Company Number: None

PATIENT
  Age: 80 Year
  Sex: Male
  Weight: 77.56 kg

DRUGS (2)
  1. ERIVEDGE [Suspect]
     Active Substance: VISMODEGIB
     Indication: Basal cell carcinoma
     Dosage: FREQUENCY : DAILY;?
     Route: 048
     Dates: start: 202401
  2. ERIVEDGE [Suspect]
     Active Substance: VISMODEGIB
     Indication: Skin cancer

REACTIONS (6)
  - Fall [None]
  - Lower limb fracture [None]
  - Therapy interrupted [None]
  - Toxicity to various agents [None]
  - Muscle injury [None]
  - Musculoskeletal toxicity [None]
